FAERS Safety Report 7959299-7 (Version None)
Quarter: 2011Q4

REPORT INFORMATION
  Report Type: 
  Country: None (occurrence: None)
  Receive Date: 20111130
  Receipt Date: 20111125
  Transmission Date: 20120403
  Serious: Yes (Death, Hospitalization, Other)
  Sender: FDA-Public Use
  Company Number: AUR-APL-2011-05923

PATIENT
  Age: 50 Year
  Sex: Female

DRUGS (4)
  1. BUPROPION HYDROCHLORIDE [Suspect]
     Indication: PRODUCT USED FOR UNKNOWN INDICATION
  2. METOPROLOL TARTRATE [Suspect]
     Indication: PRODUCT USED FOR UNKNOWN INDICATION
  3. INSULIN [Suspect]
     Indication: CARDIOGENIC SHOCK
  4. FAT EMULSION INJ [Suspect]
     Indication: CARDIOGENIC SHOCK

REACTIONS (8)
  - CARDIOGENIC SHOCK [None]
  - DRUG INEFFECTIVE [None]
  - BRADYCARDIA [None]
  - DRUG INTERACTION [None]
  - POISONING [None]
  - MULTIPLE DRUG OVERDOSE [None]
  - CARDIAC ARREST [None]
  - MULTI-ORGAN FAILURE [None]
